FAERS Safety Report 7676764-0 (Version None)
Quarter: 2011Q3

REPORT INFORMATION
  Report Type: 
  Country: None (occurrence: None)
  Receive Date: 20110811
  Receipt Date: 20110808
  Transmission Date: 20111222
  Serious: Yes (Life-Threatening, Hospitalization)
  Sender: FDA-Public Use
  Company Number: JP-EISAI INC-E2020-06844-CLI-JP

PATIENT
  Sex: Female
  Weight: 44.1 kg

DRUGS (14)
  1. SEROQUEL [Concomitant]
     Route: 048
     Dates: start: 20051101
  2. MAGNESIUM SULFATE [Concomitant]
     Route: 048
     Dates: start: 20060413
  3. ALPRAZOLAM [Concomitant]
     Route: 048
     Dates: start: 20060502
  4. ARICEPT [Suspect]
     Route: 048
     Dates: start: 20090528, end: 20100104
  5. LOVOX [Concomitant]
     Route: 048
     Dates: start: 20020923
  6. ARICEPT [Suspect]
     Indication: DEMENTIA ALZHEIMER'S TYPE
     Route: 048
     Dates: start: 20090327, end: 20090501
  7. ARICEPT [Suspect]
     Route: 048
     Dates: start: 20100123
  8. LIPIDIL [Concomitant]
     Route: 048
     Dates: start: 20090619
  9. JUVELA N [Concomitant]
     Route: 048
     Dates: start: 20030821
  10. PURSENNID [Concomitant]
     Route: 048
     Dates: start: 20060413
  11. ARICEPT [Suspect]
     Route: 048
     Dates: start: 20090501, end: 20090528
  12. METHYCOBAL [Concomitant]
     Route: 048
     Dates: start: 20030821
  13. RABEPRAZOLE SODIUM [Concomitant]
     Route: 048
     Dates: start: 20081225
  14. DEPAS [Concomitant]
     Route: 048
     Dates: start: 20050512

REACTIONS (2)
  - OVERDOSE [None]
  - SMALL INTESTINAL PERFORATION [None]
